FAERS Safety Report 8187021-0 (Version None)
Quarter: 2012Q1

REPORT INFORMATION
  Report Type: 
  Country: None (occurrence: None)
  Receive Date: 20120306
  Receipt Date: 20120301
  Transmission Date: 20120608
  Serious: Yes (Other)
  Sender: FDA-Public Use
  Company Number: US-PFIZER INC-2012055943

PATIENT
  Sex: Female
  Weight: 68 kg

DRUGS (4)
  1. PREMARIN [Suspect]
     Indication: HORMONE REPLACEMENT THERAPY
     Dosage: 1.25 MG, 2X/DAY
     Route: 048
     Dates: start: 19820101
  2. PREMARIN [Suspect]
     Dosage: 0.625 MG, 2X/DAY
     Route: 048
  3. LIPITOR [Concomitant]
     Dosage: UNK
  4. CRESTOR [Concomitant]
     Dosage: UNK

REACTIONS (2)
  - CHONDROPATHY [None]
  - ARTHRALGIA [None]
